FAERS Safety Report 7634069-8 (Version None)
Quarter: 2011Q3

REPORT INFORMATION
  Report Type: 
  Country: None (occurrence: None)
  Receive Date: 20110725
  Receipt Date: 20110718
  Transmission Date: 20111222
  Serious: Yes (Other)
  Sender: FDA-Public Use
  Company Number: CA-ABBOTT-11P-028-0839970-00

PATIENT
  Sex: Female
  Weight: 63.56 kg

DRUGS (2)
  1. OXAZEPAM [Concomitant]
     Indication: SLEEP DISORDER THERAPY
     Route: 048
     Dates: start: 20100101
  2. HUMIRA [Suspect]
     Indication: CROHN'S DISEASE
     Route: 058
     Dates: start: 20090314, end: 20110501

REACTIONS (5)
  - MONOPLEGIA [None]
  - PROCEDURAL PAIN [None]
  - NEURALGIA [None]
  - DEPRESSION [None]
  - NEUROPATHY PERIPHERAL [None]
